FAERS Safety Report 8617860-0 (Version None)
Quarter: 2012Q3

REPORT INFORMATION
  Report Type: 
  Country: None (occurrence: None)
  Receive Date: 20120824
  Receipt Date: 20120326
  Transmission Date: 20120928
  Serious: No
  Sender: FDA-Public Use
  Company Number: US-ASTRAZENECA-2012SE17973

PATIENT
  Age: 33 Year
  Sex: Female

DRUGS (2)
  1. SYMBICORT [Suspect]
     Dosage: UNKNOWN STRENGTH AND FREQUENCY
     Route: 055
  2. RESCUE INHALER [Concomitant]

REACTIONS (3)
  - DRUG DOSE OMISSION [None]
  - ASTHMA [None]
  - DYSPNOEA [None]
